FAERS Safety Report 23514691 (Version 2)
Quarter: 2024Q1

REPORT INFORMATION
  Report Type: Spontaneous
  Country: MX (occurrence: MX)
  Receive Date: 20240212
  Receipt Date: 20240216
  Transmission Date: 20240410
  Serious: Yes (Hospitalization)
  Sender: FDA-Public Use
  Company Number: MX-BIOMARINAP-MX-2024-155786

PATIENT

DRUGS (1)
  1. VIMIZIM [Suspect]
     Active Substance: ELOSULFASE ALFA
     Indication: Mucopolysaccharidosis IV
     Dosage: UNK, QW
     Route: 042
     Dates: start: 20031205

REACTIONS (6)
  - Pneumonia [Recovering/Resolving]
  - Community acquired infection [Recovering/Resolving]
  - Cough [Recovering/Resolving]
  - Increased bronchial secretion [Recovering/Resolving]
  - Oxygen saturation decreased [Recovering/Resolving]
  - Incorrect drug administration rate [Unknown]

NARRATIVE: CASE EVENT DATE: 20240204
